FAERS Safety Report 7462905-7 (Version None)
Quarter: 2011Q2

REPORT INFORMATION
  Report Type: 
  Country: None (occurrence: None)
  Receive Date: 20110506
  Receipt Date: 20110502
  Transmission Date: 20111010
  Serious: Yes (Hospitalization, Other)
  Sender: FDA-Public Use
  Company Number: AU-ABBOTT-11P-008-0705966-00

PATIENT

DRUGS (2)
  1. AZATHIOPRINE [Concomitant]
     Indication: PRODUCT USED FOR UNKNOWN INDICATION
  2. HUMIRA [Suspect]
     Indication: CROHN'S DISEASE
     Dates: start: 20100801, end: 20101114

REACTIONS (6)
  - CROHN'S DISEASE [None]
  - ANAPHYLACTIC REACTION [None]
  - NAUSEA [None]
  - IDIOPATHIC THROMBOCYTOPENIC PURPURA [None]
  - VOMITING [None]
  - RECTAL HAEMORRHAGE [None]
